FAERS Safety Report 10047091 (Version 2)
Quarter: 2014Q1

REPORT INFORMATION
  Report Type: Spontaneous
  Country: US (occurrence: US)
  Receive Date: 20140331
  Receipt Date: 20140331
  Transmission Date: 20141002
  Serious: No
  Sender: FDA-Public Use
  Company Number: US-MYLANLABS-2013S1006670

PATIENT
  Age: 74 Year
  Sex: Male
  Weight: 95.26 kg

DRUGS (9)
  1. FENTANYL TRANSDERMAL SYSTEM [Suspect]
     Indication: BACK PAIN
     Dosage: Q72HR
     Route: 062
     Dates: start: 201302
  2. OMEPRAZOLE [Concomitant]
     Indication: GASTROOESOPHAGEAL REFLUX DISEASE
  3. LIPITOR [Concomitant]
     Indication: BLOOD CHOLESTEROL INCREASED
  4. TOPROL [Concomitant]
     Indication: CARDIAC DISORDER
     Dosage: TOPROL XL
  5. ASA [Concomitant]
  6. ISOSORBIDE [Concomitant]
     Indication: CARDIAC DISORDER
  7. LYRICA [Concomitant]
     Indication: BACK PAIN
  8. VICODIN [Concomitant]
     Indication: PAIN
  9. IBUPROFEN [Concomitant]
     Indication: PAIN

REACTIONS (3)
  - Dyspnoea [Recovering/Resolving]
  - Dry mouth [Not Recovered/Not Resolved]
  - Dysphagia [Not Recovered/Not Resolved]
